FAERS Safety Report 18653050 (Version 1)
Quarter: 2020Q4

REPORT INFORMATION
  Report Type: Other
  Country: US (occurrence: US)
  Receive Date: 20201222
  Receipt Date: 20201222
  Transmission Date: 20210114
  Serious: No
  Sender: FDA-Public Use
  Company Number: US-ROCHE-2737684

PATIENT
  Sex: Female

DRUGS (12)
  1. LORAZEPAM. [Concomitant]
     Active Substance: LORAZEPAM
     Dosage: TAKE 1 TABLET (0.5 MG)  BY ORAL ROUTE 3 TIMES PER DAY (PT STATES TAKES AS NEEDED ABOUT 3 X/YEAR)
  2. ONDANSETRON [Concomitant]
     Active Substance: ONDANSETRON
     Dosage: TAKE 1 TABLET BY ORAL ROUTE EVERY 8 HOURS AS NEEDED
  3. PREDNISONE. [Concomitant]
     Active Substance: PREDNISONE
     Dosage: TAKE 1 TABLET (10 MG) BY MOUTH DAILY
  4. VENLAFAXINE [Concomitant]
     Active Substance: VENLAFAXINE HYDROCHLORIDE
     Dosage: TAKE 1 TABLET BY ORAL ROUTE 2 TIMES PER DAY WITH FOOD
  5. ALBUTEROL. [Concomitant]
     Active Substance: ALBUTEROL
     Dosage: INHALE 2 PUFF EVERY 4 HOURS AS NEEDED
  6. KLONOPIN [Suspect]
     Active Substance: CLONAZEPAM
     Indication: PRODUCT USED FOR UNKNOWN INDICATION
     Dosage: TAKE 2 TABLETS (2 MG) BY ORAL ROUTE AT BEDTIME
     Route: 048
  7. VITAMIN D3 [Concomitant]
     Active Substance: CHOLECALCIFEROL
  8. LISINOPRIL AND HYDROCHLOROTHIAZIDE [Concomitant]
     Active Substance: HYDROCHLOROTHIAZIDE\LISINOPRIL
  9. OCREVUS [Suspect]
     Active Substance: OCRELIZUMAB
     Indication: RELAPSING MULTIPLE SCLEROSIS
     Route: 065
     Dates: start: 20190509
  10. OXYCODONE [Concomitant]
     Active Substance: OXYCODONE
     Dosage: TAKE 1 TABLET (5 MG)MBY ORAL ROUTE EVERY 6 HOURS AS NEEDED FOR PAIN
  11. TRAMADOL. [Concomitant]
     Active Substance: TRAMADOL
     Dosage: TAKE 1 TABLET BY ORAL ROUTE THREE TIMES DAILY AS NEEDED FOR MODERATE PAIN
  12. ZYRTEC (UNITED STATES) [Concomitant]
     Dosage: TAKE 1 TABLET (10 MG) BY ORAL ROUTE ONCE DAILY

REACTIONS (1)
  - COVID-19 [Recovered/Resolved]
